FAERS Safety Report 6146390-3 (Version None)
Quarter: 2009Q2

REPORT INFORMATION
  Report Type: 
  Country: None (occurrence: None)
  Receive Date: 20090403
  Receipt Date: 20090403
  Transmission Date: 20091009
  Serious: Yes (Hospitalization, Disabling, Congenital Anomaly, Other)
  Sender: FDA-Public Use
  Company Number: None

PATIENT
  Sex: Female
  Weight: 92.5338 kg

DRUGS (3)
  1. LITHIUM CARBONATE [Suspect]
     Indication: BIPOLAR DISORDER
     Dates: start: 19880101, end: 19900101
  2. LITHIUM CARBONATE [Suspect]
     Indication: CONDUCT DISORDER
     Dates: start: 19880101, end: 19900101
  3. LITHIUM CARBONATE [Suspect]
     Indication: DEPRESSION
     Dates: start: 19880101, end: 19900101

REACTIONS (6)
  - AMNESIA [None]
  - ANAEMIA [None]
  - CONFUSIONAL STATE [None]
  - JOINT LOCK [None]
  - MENTAL DISORDER [None]
  - MOOD ALTERED [None]
